FAERS Safety Report 9817548 (Version 1)
Quarter: 2014Q1

REPORT INFORMATION
  Report Type: Spontaneous
  Country: US (occurrence: US)
  Receive Date: 20140115
  Receipt Date: 20140115
  Transmission Date: 20141002
  Serious: Yes (Hospitalization)
  Sender: FDA-Public Use
  Company Number: US-AMGEN-USASP2014002189

PATIENT
  Age: 60 Year
  Sex: Male

DRUGS (2)
  1. ENBREL [Suspect]
     Indication: PSORIATIC ARTHROPATHY
     Dosage: 25 MG, 2 TIMES/WK
     Route: 065
     Dates: start: 20030601
  2. ENBREL [Suspect]
     Indication: PSORIASIS

REACTIONS (3)
  - Myocardial infarction [Recovered/Resolved]
  - Psoriasis [Not Recovered/Not Resolved]
  - Injection site discomfort [Not Recovered/Not Resolved]
